FAERS Safety Report 5148172-8 (Version None)
Quarter: 2006Q4

REPORT INFORMATION
  Report Type: 
  Country: None (occurrence: None)
  Receive Date: 20061106
  Receipt Date: 20061024
  Transmission Date: 20070319
  Serious: Yes (Death, Hospitalization, Other)
  Sender: FDA-Public Use
  Company Number: 06-0137PO

PATIENT
  Age: 57 Year
  Sex: Male

DRUGS (2)
  1. MEFENAMIC ACID [Suspect]
     Indication: MALAISE
     Dosage: 1 CAPSULE NOS, QD
     Dates: start: 20060129
  2. MEFENAMIC ACID [Suspect]
     Indication: PYREXIA
     Dosage: 1 CAPSULE NOS, QD
     Dates: start: 20060129

REACTIONS (9)
  - ESCHERICHIA URINARY TRACT INFECTION [None]
  - KIDNEY ENLARGEMENT [None]
  - LYMPHOCYTE STIMULATION TEST POSITIVE [None]
  - MALACOPLAKIA VESICAE [None]
  - NEPHRITIS INTERSTITIAL [None]
  - RENAL DISORDER [None]
  - RENAL FAILURE ACUTE [None]
  - RENAL IMPAIRMENT [None]
  - SUBARACHNOID HAEMORRHAGE [None]
